FAERS Safety Report 12371037 (Version 3)
Quarter: 2016Q4

REPORT INFORMATION
  Report Type: Spontaneous
  Country: US (occurrence: US)
  Receive Date: 20160516
  Receipt Date: 20161206
  Transmission Date: 20170207
  Serious: Yes (Hospitalization, Other)
  Sender: FDA-Public Use
  Company Number: PHEH2016US011143

PATIENT
  Age: 63 Year
  Sex: Female
  Weight: 101 kg

DRUGS (9)
  1. ENTRESTO [Suspect]
     Active Substance: SACUBITRIL\VALSARTAN
     Indication: CARDIAC FAILURE
     Dosage: 1 DF, BID
     Route: 048
     Dates: start: 20160203, end: 20160229
  2. ATORVASTATIN [Interacting]
     Active Substance: ATORVASTATIN
     Indication: HYPERLIPIDAEMIA
     Dosage: 40 MG, QD
     Route: 048
     Dates: start: 20150831, end: 20160229
  3. LORATADINE. [Concomitant]
     Active Substance: LORATADINE
     Indication: PRODUCT USED FOR UNKNOWN INDICATION
     Dosage: 10 G, QD
     Route: 065
  4. CARVEDILOL. [Concomitant]
     Active Substance: CARVEDILOL
     Indication: CARDIAC FAILURE CHRONIC
     Dosage: 25 MG, BID
     Route: 048
     Dates: start: 20140731
  5. XARELTO [Concomitant]
     Active Substance: RIVAROXABAN
     Indication: ATRIAL FIBRILLATION
     Dosage: 15 MG, QD
     Route: 048
     Dates: start: 20150715
  6. DIGOXIN. [Concomitant]
     Active Substance: DIGOXIN
     Indication: CARDIAC FAILURE CHRONIC
     Dosage: 0.125 MG, QD
     Route: 048
     Dates: start: 20150327
  7. RIVAROXABAN [Concomitant]
     Active Substance: RIVAROXABAN
     Indication: CARDIAC FAILURE
     Dosage: 15 MG, QD
     Route: 065
  8. LASIX [Concomitant]
     Active Substance: FUROSEMIDE
     Indication: CARDIAC FAILURE CHRONIC
     Dosage: 40 MG, QD
     Route: 048
     Dates: start: 20140720
  9. SPIRONOLACTONE. [Concomitant]
     Active Substance: SPIRONOLACTONE
     Indication: CARDIAC FAILURE CHRONIC
     Dosage: 25 MG, QD
     Route: 048
     Dates: start: 20140731

REACTIONS (13)
  - Malaise [Recovered/Resolved]
  - Alanine aminotransferase increased [Recovered/Resolved]
  - Fatigue [Recovered/Resolved]
  - Pain of skin [Recovered/Resolved]
  - Myositis [Recovered/Resolved]
  - Rhabdomyolysis [Recovered/Resolved]
  - Asthenia [Recovered/Resolved]
  - Chromaturia [Recovered/Resolved]
  - Myalgia [Recovered/Resolved]
  - Arthralgia [Recovered/Resolved]
  - Myopathy [Recovered/Resolved]
  - Aspartate aminotransferase increased [Recovered/Resolved]
  - Drug interaction [Unknown]

NARRATIVE: CASE EVENT DATE: 20160225
